FAERS Safety Report 16526314 (Version 1)
Quarter: 2019Q3

REPORT INFORMATION
  Report Type: Other
  Country: GB (occurrence: GB)
  Receive Date: 20190703
  Receipt Date: 20190703
  Transmission Date: 20191004
  Serious: No
  Sender: FDA-Public Use
  Company Number: GB-LUPIN PHARMACEUTICALS INC.-2018-05204

PATIENT
  Age: 62 Year
  Sex: Female
  Weight: 82 kg

DRUGS (8)
  1. BENDROFLUMETHIAZIDE [Concomitant]
     Active Substance: BENDROFLUMETHIAZIDE
     Indication: BLOOD PRESSURE ABNORMAL
     Dosage: UNK UNK, QD (TAKE ONE EACH MORNING (BLOOD PRESSURE)
     Route: 065
     Dates: start: 20180104
  2. AMOROLFINE [Concomitant]
     Active Substance: AMOROLFINE
     Indication: ILL-DEFINED DISORDER
     Dosage: UNK (APPLY 1-2 TIMES A WEEK)
     Route: 065
     Dates: start: 20170725
  3. RAMIPRIL. [Concomitant]
     Active Substance: RAMIPRIL
     Indication: BLOOD PRESSURE ABNORMAL
     Dosage: UNK UNK, QD (TAKEE ONE DAILY TO LOWER BLOOD PRESSURE)
     Route: 065
     Dates: start: 20170725
  4. SIMVASTATIN. [Suspect]
     Active Substance: SIMVASTATIN
     Indication: PRODUCT USED FOR UNKNOWN INDICATION
     Dosage: UNK
     Route: 065
     Dates: start: 20180702
  5. METFORMIN [Concomitant]
     Active Substance: METFORMIN HYDROCHLORIDE
     Indication: ILL-DEFINED DISORDER
     Dosage: UNK UNK, QD (TAKE ONE DAILY WITH BREAKFAST)
     Route: 065
     Dates: start: 20170725
  6. LEVOTHYROXINE. [Concomitant]
     Active Substance: LEVOTHYROXINE
     Indication: HYPOTHYROIDISM
     Dosage: UNK UNK, QD (ONE EACH MORNING HYPOTHYROID REPLACEMENT THERAPY)
     Route: 065
     Dates: start: 20170725
  7. FLUVASTATIN [Concomitant]
     Active Substance: FLUVASTATIN SODIUM
     Indication: ILL-DEFINED DISORDER
     Dosage: UNK UNK, QD (TAKE ONE MORNING)
     Route: 065
     Dates: start: 20170725
  8. PANTOPRAZOLE [Concomitant]
     Active Substance: PANTOPRAZOLE
     Indication: ILL-DEFINED DISORDER
     Dosage: 1 DF, UNK (TAKE ONE TABLET ONCE OR TWICE A DAY (TO REDUCE)
     Route: 065
     Dates: start: 20170725

REACTIONS (1)
  - Malaise [Not Recovered/Not Resolved]

NARRATIVE: CASE EVENT DATE: 20180702
